FAERS Safety Report 5505130-9 (Version None)
Quarter: 2007Q4

REPORT INFORMATION
  Report Type: 
  Country: None (occurrence: None)
  Receive Date: 20071031
  Receipt Date: 20071012
  Transmission Date: 20080405
  Serious: Yes (Other)
  Sender: FDA-Public Use
  Company Number: 2007US002550

PATIENT
  Age: 67 Year
  Sex: Female

DRUGS (2)
  1. PROGRAF [Suspect]
     Indication: PANCREAS TRANSPLANT
     Dosage: 1 MG, BID, ORAL
     Route: 048
  2. CELLCEPT [Concomitant]

REACTIONS (2)
  - DRUG INEFFECTIVE FOR UNAPPROVED INDICATION [None]
  - PANCREAS TRANSPLANT REJECTION [None]
